FAERS Safety Report 13264645 (Version 1)
Quarter: 2017Q1

REPORT INFORMATION
  Report Type: Spontaneous
  Country: US (occurrence: US)
  Receive Date: 20170223
  Receipt Date: 20170223
  Transmission Date: 20170428
  Serious: Yes (Hospitalization)
  Sender: FDA-Public Use
  Company Number: None

PATIENT
  Age: 65 Year
  Sex: Female
  Weight: 71.1 kg

DRUGS (19)
  1. LORATADINE (CLARITIN) [Concomitant]
  2. CLOTRIMAZOLE (LOTRIMIN) [Concomitant]
  3. INVOKANA [Suspect]
     Active Substance: CANAGLIFLOZIN
     Indication: TYPE 1 DIABETES MELLITUS
     Route: 048
  4. LASIX [Concomitant]
     Active Substance: FUROSEMIDE
  5. PRILOSEC [Concomitant]
     Active Substance: OMEPRAZOLE MAGNESIUM
  6. MOMETASONE (ELOCON) [Concomitant]
  7. COMBIVENT RESPIMAT [Concomitant]
     Active Substance: ALBUTEROL SULFATE\IPRATROPIUM BROMIDE
  8. REMERON [Concomitant]
     Active Substance: MIRTAZAPINE
  9. ASPIRIN. [Concomitant]
     Active Substance: ASPIRIN
  10. AMITRIPTYLINE (ELAVIL) [Concomitant]
  11. IBUPROFEN (ADVIL,MOTRIN) [Concomitant]
  12. BACTROBAN [Concomitant]
     Active Substance: MUPIROCIN\MUPIROCIN CALCIUM
  13. CYMBALTA [Concomitant]
     Active Substance: DULOXETINE HYDROCHLORIDE
  14. LOSARTAN (COZAAR) [Concomitant]
  15. ZOCOR [Concomitant]
     Active Substance: SIMVASTATIN
  16. METFORMIN (GLUCOPHAGE-XR) [Concomitant]
  17. ACT INHALER [Concomitant]
  18. LAMOTRIGINE (LAMICTAL) [Concomitant]
  19. OXYBUTYNIN (DITROPAN XL) [Concomitant]

REACTIONS (4)
  - Leukocytosis [None]
  - Diabetic ketoacidosis [None]
  - Metabolic acidosis [None]
  - Bandaemia [None]

NARRATIVE: CASE EVENT DATE: 20170202
